FAERS Safety Report 7814905-2 (Version None)
Quarter: 2011Q4

REPORT INFORMATION
  Report Type: 
  Country: None (occurrence: None)
  Receive Date: 20111014
  Receipt Date: 20110930
  Transmission Date: 20120403
  Serious: Yes (Other)
  Sender: FDA-Public Use
  Company Number: US-BAYER-2011-081753

PATIENT
  Age: 45 Year
  Sex: Female
  Weight: 81.633 kg

DRUGS (16)
  1. YASMIN [Suspect]
     Indication: CONTRACEPTION
     Dosage: UNK
     Dates: start: 20070801, end: 20080601
  2. FLOVENT [Concomitant]
     Route: 055
  3. YASMIN [Suspect]
     Indication: MOOD ALTERED
  4. YAZ [Suspect]
     Indication: CONTRACEPTION
     Dosage: UNK
     Dates: start: 20070501
  5. DROSPIRENONE AND ETHINYL ESTRADIOL [Suspect]
     Indication: CONTRACEPTION
     Dosage: UNK
     Dates: start: 20080701, end: 20080901
  6. ACYCLOVIR [Concomitant]
     Dosage: UNK
     Route: 048
     Dates: start: 19890101
  7. AMBIEN [Concomitant]
     Dosage: 6.25 MG, UNK
     Route: 048
     Dates: start: 20080718
  8. YASMIN [Suspect]
     Indication: MENSTRUAL CYCLE MANAGEMENT
  9. AVIANE-28 [Concomitant]
  10. YAZ [Suspect]
     Indication: MOOD ALTERED
  11. SINGULAIR [Concomitant]
     Dosage: 10 MG, UNK
     Route: 048
  12. FLUOXETINE HYDROCHLORIDE [Concomitant]
     Dosage: 40 MG, UNK
     Route: 048
     Dates: start: 20080712
  13. YAZ [Suspect]
     Indication: MENSTRUAL CYCLE MANAGEMENT
  14. DROSPIRENONE AND ETHINYL ESTRADIOL [Suspect]
     Indication: MENSTRUAL CYCLE MANAGEMENT
  15. DROSPIRENONE AND ETHINYL ESTRADIOL [Suspect]
     Indication: MOOD ALTERED
  16. ACIPHEX [Concomitant]
     Dosage: 20 MG, UNK
     Route: 048
     Dates: start: 20080703

REACTIONS (10)
  - COGNITIVE DISORDER [None]
  - CHEST PAIN [None]
  - AMNESIA [None]
  - CEREBROVASCULAR ACCIDENT [None]
  - INJURY [None]
  - MENTAL DISORDER [None]
  - CEREBRAL THROMBOSIS [None]
  - GALLBLADDER INJURY [None]
  - PAIN [None]
  - CHOLECYSTITIS CHRONIC [None]
